FAERS Safety Report 10237804 (Version 1)
Quarter: 2014Q2

REPORT INFORMATION
  Report Type: Spontaneous
  Country: US (occurrence: None)
  Receive Date: 20140612
  Receipt Date: 20140612
  Transmission Date: 20141212
  Serious: Yes (Hospitalization)
  Sender: FDA-Public Use
  Company Number: None

PATIENT
  Age: 55 Year
  Sex: Male
  Weight: 69.1 kg

DRUGS (3)
  1. DOXYCYCLINE [Suspect]
     Indication: SUBCUTANEOUS ABSCESS
     Route: 048
     Dates: start: 20140303, end: 20140305
  2. DOXYCYCLINE [Suspect]
     Indication: DISEASE RECURRENCE
     Route: 048
     Dates: start: 20140303, end: 20140305
  3. CLINDAMYCIN [Suspect]
     Route: 048
     Dates: start: 20140303, end: 20140303

REACTIONS (2)
  - Drug eruption [None]
  - Blister [None]
